FAERS Safety Report 9224738 (Version 2)
Quarter: 2013Q2

REPORT INFORMATION
  Report Type: Report from Study
  Country: US (occurrence: US)
  Receive Date: 20130411
  Receipt Date: 20130412
  Transmission Date: 20140414
  Serious: Yes (Hospitalization, Other)
  Sender: FDA-Public Use
  Company Number: US-ASTELLAS-2013US003789

PATIENT
  Sex: Female
  Weight: 62 kg

DRUGS (7)
  1. ERLOTINIB TABLET [Suspect]
     Indication: NON-SMALL CELL LUNG CANCER
     Dosage: 150 MG, UID/QD
     Route: 048
     Dates: start: 20130314
  2. SIMVASTATIN [Concomitant]
     Indication: BLOOD CHOLESTEROL INCREASED
     Dosage: 40 MG, UID/QD
     Route: 048
  3. LISINOPRIL [Concomitant]
     Indication: HYPERTENSION
     Dosage: 20 MG, UID/QD
     Route: 048
  4. ASPIRIN [Concomitant]
     Indication: PRODUCT USED FOR UNKNOWN INDICATION
     Dosage: 8 MG, UID/QD
     Route: 048
  5. VICODIN [Concomitant]
     Indication: PAIN
     Dosage: 15/1500MG UID/QD
     Route: 048
  6. DOCUSATE SODIUM [Concomitant]
     Indication: CONSTIPATION
     Dosage: 100 MG, UID/QD
     Route: 048
  7. MEGACE [Concomitant]
     Indication: INCREASED APPETITE
     Dosage: 20 ML, UID/QD
     Route: 048

REACTIONS (3)
  - Gastric ulcer [Unknown]
  - Haemoptysis [Not Recovered/Not Resolved]
  - Melaena [Not Recovered/Not Resolved]
